FAERS Safety Report 16008335 (Version 1)
Quarter: 2019Q1

REPORT INFORMATION
  Report Type: Spontaneous
  Country: US (occurrence: US)
  Receive Date: 20190226
  Receipt Date: 20190226
  Transmission Date: 20190418
  Serious: Yes (Hospitalization)
  Sender: FDA-Public Use
  Company Number: US-INDIVIOR LIMITED-INDV-117903-2019

PATIENT
  Age: 66 Year
  Sex: Male

DRUGS (7)
  1. SUBOXONE [Suspect]
     Active Substance: BUPRENORPHINE HYDROCHLORIDE\NALOXONE HYDROCHLORIDE
     Indication: DRUG DEPENDENCE
     Dosage: UNK, DAILY
     Route: 060
     Dates: start: 2017, end: 2018
  2. TESTOSTERONE. [Concomitant]
     Active Substance: TESTOSTERONE
     Indication: PRODUCT USED FOR UNKNOWN INDICATION
     Dosage: UNK
     Route: 030
  3. METOPROLOL. [Concomitant]
     Active Substance: METOPROLOL
     Indication: HYPERTENSION
     Dosage: UNK
     Route: 065
  4. IRBESARTAN. [Concomitant]
     Active Substance: IRBESARTAN
     Indication: HYPERTENSION
     Dosage: UNK
     Route: 065
  5. SUBOXONE [Suspect]
     Active Substance: BUPRENORPHINE HYDROCHLORIDE\NALOXONE HYDROCHLORIDE
     Dosage: UNK, CUTTING THE FILM
     Route: 060
     Dates: start: 201902, end: 201902
  6. SUBOXONE [Suspect]
     Active Substance: BUPRENORPHINE HYDROCHLORIDE\NALOXONE HYDROCHLORIDE
     Dosage: CUTTING THE FILMS INTO HALVES, THEN QUARTERS, THEN LITTLE PIECES AND THEN SLIVERS
     Route: 060
     Dates: start: 2018
  7. NEXIUM [Concomitant]
     Active Substance: ESOMEPRAZOLE MAGNESIUM
     Indication: GASTROOESOPHAGEAL REFLUX DISEASE
     Dosage: UNK
     Route: 065

REACTIONS (13)
  - Feeling abnormal [Recovering/Resolving]
  - Agitation [Recovering/Resolving]
  - Weight decreased [Unknown]
  - Drug withdrawal syndrome [Recovering/Resolving]
  - Anxiety [Recovering/Resolving]
  - Inadequate analgesia [Unknown]
  - Wrong technique in product usage process [Recovered/Resolved]
  - Lethargy [Recovering/Resolving]
  - Abdominal hernia [Unknown]
  - Condition aggravated [Unknown]
  - Intentional underdose [Recovered/Resolved]
  - Insomnia [Recovering/Resolving]
  - Restlessness [Recovering/Resolving]

NARRATIVE: CASE EVENT DATE: 2018
